FAERS Safety Report 7376451-2 (Version None)
Quarter: 2011Q1

REPORT INFORMATION
  Report Type: 
  Country: None (occurrence: None)
  Receive Date: 20110325
  Receipt Date: 20110302
  Transmission Date: 20110831
  Serious: No
  Sender: FDA-Public Use
  Company Number: US-B.I. PHARMACEUTICALS,INC./RIDGEFIELD-2010-BP-15186BP

PATIENT
  Sex: Female

DRUGS (21)
  1. TRAMADOL [Concomitant]
     Indication: FIBROMYALGIA
     Route: 048
     Dates: start: 19950101
  2. FISH OIL EPA OMEGA 3 [Concomitant]
  3. PRADAXA [Suspect]
     Dosage: 150 MG
     Route: 048
     Dates: start: 20101211
  4. PRADAXA [Suspect]
     Dosage: 300 MG
     Route: 048
     Dates: start: 20101201
  5. METOPROLOL [Concomitant]
     Indication: HYPERTENSION
     Dosage: 50 MG
     Route: 048
     Dates: start: 19990101
  6. MULTAQ [Concomitant]
     Indication: ATRIAL FIBRILLATION
  7. LYRICA [Concomitant]
     Indication: FIBROMYALGIA
     Dosage: 75 MG
     Route: 048
     Dates: start: 19950101
  8. QUINAPRIL [Concomitant]
  9. B25 OR B50 [Concomitant]
  10. ESTHER C [Concomitant]
     Dosage: 250 MG
  11. TRIAMTERENE AND HYDROCHLOROTHIAZIDE [Concomitant]
  12. LUNESTA [Concomitant]
     Dosage: 3 MG
  13. FIBROCARE [Concomitant]
     Indication: FIBROMYALGIA
  14. NEXIUM [Concomitant]
     Indication: GASTROOESOPHAGEAL REFLUX DISEASE
     Dosage: 40 MG
     Route: 048
  15. SUN HARVEST SENIOR VITAMIN [Concomitant]
  16. CALCIUM [Concomitant]
  17. ZINC [Concomitant]
  18. PRADAXA [Suspect]
     Indication: ATRIAL FIBRILLATION
     Dosage: 300 MG
     Route: 048
     Dates: start: 20101207, end: 20101209
  19. LORAZEPAM [Concomitant]
  20. QUINAPRIL [Concomitant]
     Indication: HYPERTENSION
     Route: 048
  21. TRAMADOL [Concomitant]
     Indication: PAIN
     Dosage: 150 MG

REACTIONS (12)
  - DYSPEPSIA [None]
  - RASH [None]
  - HEART RATE INCREASED [None]
  - FATIGUE [None]
  - THROAT TIGHTNESS [None]
  - HEART RATE DECREASED [None]
  - DECREASED APPETITE [None]
  - PRURITUS [None]
  - HYPOTENSION [None]
  - GASTROOESOPHAGEAL REFLUX DISEASE [None]
  - ABDOMINAL DISCOMFORT [None]
  - ABDOMINAL DISTENSION [None]
